FAERS Safety Report 5822777-0 (Version None)
Quarter: 2008Q3

REPORT INFORMATION
  Report Type: 
  Country: None (occurrence: None)
  Receive Date: 20080725
  Receipt Date: 20071005
  Transmission Date: 20090109
  Serious: No
  Sender: FDA-Public Use
  Company Number: US-AMGEN-KDL246839

PATIENT
  Sex: Female
  Weight: 56.8 kg

DRUGS (3)
  1. PROCRIT [Suspect]
     Indication: RENAL FAILURE CHRONIC
     Dates: start: 20071004
  2. LIPITOR [Concomitant]
     Dates: start: 20060101
  3. METFORMIN HCL [Concomitant]
     Dates: start: 20050101

REACTIONS (1)
  - PAIN [None]
